FAERS Safety Report 7298700-1 (Version None)
Quarter: 2011Q1

REPORT INFORMATION
  Report Type: 
  Country: None (occurrence: None)
  Receive Date: 20110209
  Receipt Date: 20110128
  Transmission Date: 20110831
  Serious: Yes (Other)
  Sender: FDA-Public Use
  Company Number: CA-1184859

PATIENT
  Age: 61 Year
  Sex: Female

DRUGS (1)
  1. ISOPTO CARPINE 1 % OPHTHALMIC SOLUTION (ISOPTO CARPINE 1%) [Suspect]
     Indication: IRIDOTOMY
     Dosage: (OPHTHALMIC)
     Route: 047
     Dates: start: 20110105, end: 20110105

REACTIONS (5)
  - NEUROGENIC SHOCK [None]
  - PALLOR [None]
  - ASTHENIA [None]
  - HYPOTENSION [None]
  - SHOCK [None]
